FAERS Safety Report 16987286 (Version 1)
Quarter: 2019Q4

REPORT INFORMATION
  Report Type: Spontaneous
  Country: FR (occurrence: FR)
  Receive Date: 20191102
  Receipt Date: 20191102
  Transmission Date: 20200122
  Serious: Yes (Hospitalization)
  Sender: FDA-Public Use
  Company Number: FR-TEVA-2019-FR-1130384

PATIENT
  Age: 55 Year
  Sex: Male

DRUGS (3)
  1. NAPROXENE [Suspect]
     Active Substance: NAPROXEN
     Dosage: 8 DF PER 1 TOTAL
     Route: 048
     Dates: start: 20171106, end: 20171106
  2. ZOPICLONE [Suspect]
     Active Substance: ZOPICLONE
     Dosage: 28 DF PER 1 TOTAL
     Route: 048
     Dates: start: 20171106, end: 20171106
  3. ATARAX [Suspect]
     Active Substance: HYDROXYZINE HYDROCHLORIDE
     Dosage: 28 DF PER 1 TOTAL
     Route: 048
     Dates: start: 20171106, end: 20171106

REACTIONS (3)
  - Electrocardiogram QT prolonged [Recovered/Resolved]
  - Drug abuse [Recovering/Resolving]
  - Altered state of consciousness [Recovered/Resolved]

NARRATIVE: CASE EVENT DATE: 20171106
